FAERS Safety Report 9554180 (Version 1)
Quarter: 2013Q3

REPORT INFORMATION
  Report Type: Spontaneous
  Country: JP (occurrence: JP)
  Receive Date: 20130925
  Receipt Date: 20130925
  Transmission Date: 20140515
  Serious: Yes (Other)
  Sender: FDA-Public Use
  Company Number: JP-TEVA-433935ISR

PATIENT
  Age: 63 Year
  Sex: Female
  Weight: 53.3 kg

DRUGS (1)
  1. PREDNISOLONE [Suspect]
     Indication: NEPHROTIC SYNDROME
     Dosage: 50 MILLIGRAM DAILY;
     Route: 048

REACTIONS (1)
  - Substance-induced psychotic disorder [Unknown]
